FAERS Safety Report 6094472-7 (Version None)
Quarter: 2009Q1

REPORT INFORMATION
  Report Type: 
  Country: None (occurrence: None)
  Receive Date: 20090226
  Receipt Date: 20090216
  Transmission Date: 20090719
  Serious: Yes (Other)
  Sender: FDA-Public Use
  Company Number: US-WYE-H08234209

PATIENT
  Sex: Female
  Weight: 108.96 kg

DRUGS (6)
  1. PRISTIQ [Suspect]
     Indication: DEPRESSION
     Route: 048
     Dates: start: 20090101, end: 20090206
  2. PRISTIQ [Suspect]
     Route: 048
     Dates: start: 20090207
  3. GLYBURIDE [Concomitant]
     Dosage: 1.25/250 TWICE A DAY
  4. METFORMIN [Concomitant]
  5. WELLBUTRIN [Concomitant]
  6. LEVOXYL [Concomitant]

REACTIONS (11)
  - ABNORMAL DREAMS [None]
  - ANXIETY [None]
  - CONDITION AGGRAVATED [None]
  - DEPRESSION [None]
  - HEADACHE [None]
  - INSOMNIA [None]
  - IRRITABILITY [None]
  - LOGORRHOEA [None]
  - MANIA [None]
  - NIGHT SWEATS [None]
  - TYPE 2 DIABETES MELLITUS [None]
